FAERS Safety Report 8055881-X (Version None)
Quarter: 2011Q4

REPORT INFORMATION
  Report Type: 
  Country: None (occurrence: None)
  Receive Date: 20111216
  Receipt Date: 20110315
  Transmission Date: 20120403
  Serious: Yes (Other)
  Sender: FDA-Public Use
  Company Number: 271585USA

PATIENT
  Sex: Female
  Weight: 54.4316 kg

DRUGS (1)
  1. PARAGARD T 380A [Suspect]
     Indication: CONTRACEPTION
     Dosage: I.U.
     Route: 015
     Dates: start: 20100801

REACTIONS (6)
  - DRUG INEFFECTIVE [None]
  - PREGNANCY WITH CONTRACEPTIVE DEVICE [None]
  - VAGINAL HAEMORRHAGE [None]
  - ABORTION SPONTANEOUS [None]
  - NIPPLE PAIN [None]
  - NAUSEA [None]
